FAERS Safety Report 11078644 (Version 1)
Quarter: 2015Q2

REPORT INFORMATION
  Report Type: Spontaneous
  Country: US (occurrence: None)
  Receive Date: 20150428
  Receipt Date: 20150428
  Transmission Date: 20150821
  Serious: Yes (Hospitalization)
  Sender: FDA-Public Use
  Company Number: HA15-111-AE

PATIENT
  Age: 57 Year
  Sex: Male
  Weight: 81.65 kg

DRUGS (4)
  1. SULFAMETHOXAZOLE-TRIMETHOPRIM (SMZ) [Suspect]
     Active Substance: SULFAMETHOXAZOLE\TRIMETHOPRIM
     Indication: BRONCHITIS
     Route: 048
     Dates: start: 20150325, end: 20150403
  2. TYLENOL AND CHEST AND SINUS CONGESTION [Concomitant]
  3. ALEVE [Concomitant]
     Active Substance: NAPROXEN SODIUM
  4. SULFAMETHOXAZOLE-TRIMETHOPRIM (SMZ) [Suspect]
     Active Substance: SULFAMETHOXAZOLE\TRIMETHOPRIM
     Indication: COUGH
     Route: 048
     Dates: start: 20150325, end: 20150403

REACTIONS (13)
  - Pyrexia [None]
  - Asthenia [None]
  - Blood count abnormal [None]
  - Differential white blood cell count abnormal [None]
  - Apathy [None]
  - Renal impairment [None]
  - Thinking abnormal [None]
  - Musculoskeletal stiffness [None]
  - Tremor [None]
  - Fatigue [None]
  - Anaemia [None]
  - White blood cell count increased [None]
  - Hypersensitivity [None]

NARRATIVE: CASE EVENT DATE: 20150402
